FAERS Safety Report 7460710-9 (Version None)
Quarter: 2011Q2

REPORT INFORMATION
  Report Type: 
  Country: None (occurrence: None)
  Receive Date: 20110505
  Receipt Date: 20110429
  Transmission Date: 20111010
  Serious: Yes (Other)
  Sender: FDA-Public Use
  Company Number: BR-US-EMD SERONO, INC.-7057014

PATIENT
  Sex: Female

DRUGS (6)
  1. REBIF [Suspect]
     Indication: RELAPSING-REMITTING MULTIPLE SCLEROSIS
     Dates: start: 20100310
  2. DONAREN [Concomitant]
  3. BEROTEC [Concomitant]
     Dosage: 4 DROPS - NEBULIZATION
  4. PHENERGAN [Concomitant]
  5. NEXIUM [Concomitant]
  6. NIMESULON [Concomitant]

REACTIONS (3)
  - ARTHRALGIA [None]
  - HEPATIC STEATOSIS [None]
  - WEIGHT INCREASED [None]
